FAERS Safety Report 9553634 (Version 2)
Quarter: 2013Q4

REPORT INFORMATION
  Report Type: Report from Study
  Country: US (occurrence: US)
  Receive Date: 20130925
  Receipt Date: 20131004
  Transmission Date: 20140711
  Serious: Yes (Hospitalization)
  Sender: FDA-Public Use
  Company Number: US-ACTELION-A-NJ2013-88744

PATIENT
  Age: 63 Year
  Sex: Female

DRUGS (3)
  1. VELETRI [Suspect]
     Indication: PULMONARY ARTERIAL HYPERTENSION
     Dosage: 100 NG/KG, PER MIN
     Route: 042
     Dates: start: 20110518
  2. ADCIRCA [Concomitant]
  3. COUMADIN [Concomitant]

REACTIONS (7)
  - Haemorrhage [Unknown]
  - Platelet count decreased [Unknown]
  - Coagulation time prolonged [Unknown]
  - Hypotension [Unknown]
  - Fluid retention [Unknown]
  - Hip fracture [Unknown]
  - Hip surgery [Unknown]
